FAERS Safety Report 9661612 (Version 2)
Quarter: 2013Q4

REPORT INFORMATION
  Report Type: Spontaneous
  Country: US (occurrence: US)
  Receive Date: 20131031
  Receipt Date: 20131031
  Transmission Date: 20140711
  Serious: No
  Sender: FDA-Public Use
  Company Number: US-PURDUE-USA-2010-0054787

PATIENT
  Age: 60 Year
  Sex: Male
  Weight: 77.1 kg

DRUGS (4)
  1. OXYCONTIN (NDA 22-272) [Suspect]
     Indication: BACK PAIN
     Dosage: 840 MG, BID
     Route: 048
     Dates: start: 201011, end: 201011
  2. OXYCONTIN (NDA 22-272) [Suspect]
     Dosage: 40 MG, UNK
  3. OXYCONTIN (NDA 22-272) [Suspect]
     Dosage: 80 MG, UNK
  4. OXYCONTIN (NDA 22-272) [Suspect]
     Dosage: 20 MG, UNK

REACTIONS (7)
  - Functional gastrointestinal disorder [Unknown]
  - Influenza like illness [Recovered/Resolved]
  - Pain [Recovered/Resolved]
  - Pyrexia [Recovered/Resolved]
  - Headache [Unknown]
  - Nausea [Unknown]
  - Abdominal discomfort [Recovered/Resolved]
